FAERS Safety Report 5299996-8 (Version None)
Quarter: 2007Q2

REPORT INFORMATION
  Report Type: 
  Country: None (occurrence: None)
  Receive Date: 20070410
  Receipt Date: 20070329
  Transmission Date: 20071010
  Serious: Yes (Hospitalization)
  Sender: FDA-Public Use
  Company Number: B0463894A

PATIENT
  Age: 53 Year
  Sex: Male

DRUGS (5)
  1. RELENZA [Suspect]
     Indication: INFLUENZA
     Dosage: 10 MG / TWICE PER DAY / INHALED
     Route: 055
     Dates: start: 20070308, end: 20070309
  2. HUSCODE [Concomitant]
  3. CARBOCISTEINE [Concomitant]
  4. CYPROHEPTADINE HCL [Concomitant]
  5. TRANEXAMIC ACID [Concomitant]

REACTIONS (2)
  - PNEUMONIA [None]
  - RASH [None]
